FAERS Safety Report 9275508 (Version 2)
Quarter: 2013Q2

REPORT INFORMATION
  Report Type: Spontaneous
  Country: US (occurrence: US)
  Receive Date: 20130507
  Receipt Date: 20130618
  Transmission Date: 20140414
  Serious: No
  Sender: FDA-Public Use
  Company Number: US-PFIZER INC-2013137047

PATIENT
  Age: 85 Year
  Sex: Female

DRUGS (5)
  1. TOVIAZ [Suspect]
     Indication: URINARY INCONTINENCE
     Dosage: 4 MG, 1X/DAY
     Dates: start: 201301
  2. TOVIAZ [Suspect]
     Dosage: SPLIT 8 MG TABLETS IN HALF
     Dates: start: 201304
  3. TOVIAZ [Suspect]
     Dosage: 8 MG, 1X/DAY
     Dates: start: 201304, end: 201304
  4. CELEBREX [Concomitant]
     Indication: OSTEOARTHRITIS
     Dosage: 200 MG, 1X/DAY
  5. CELEBREX [Concomitant]
     Indication: BONE DISORDER

REACTIONS (5)
  - Incorrect dose administered [Unknown]
  - Drug intolerance [Unknown]
  - Dry mouth [Recovering/Resolving]
  - Dry skin [Recovering/Resolving]
  - Drug prescribing error [Unknown]
